FAERS Safety Report 20430733 (Version 2)
Quarter: 2022Q1

REPORT INFORMATION
  Report Type: Report from Study
  Country: FR (occurrence: FR)
  Receive Date: 20220204
  Receipt Date: 20220301
  Transmission Date: 20220423
  Serious: Yes (Hospitalization)
  Sender: FDA-Public Use
  Company Number: FR-SERVIER-S21003787

PATIENT

DRUGS (6)
  1. PEGASPARGASE [Suspect]
     Active Substance: PEGASPARGASE
     Indication: Acute lymphocytic leukaemia
     Dosage: 1425 IU, QD ON D8
     Route: 042
     Dates: start: 20210114
  2. TN UNSPECIFIED [Concomitant]
     Indication: Acute lymphocytic leukaemia
     Dosage: 1.7 MG ON D1, D8, D29, AND D36, ONGOING
     Route: 042
     Dates: start: 20210107
  3. TN UNSPECIFIED [Concomitant]
     Indication: Acute lymphocytic leukaemia
     Dosage: 6.9 MG ON D1, D8, D29, AND D36, ONGOING
     Route: 048
     Dates: start: 20210107
  4. TN UNSPECIFIED [Concomitant]
     Indication: Acute lymphocytic leukaemia
     Dosage: 56 MG ON D1 TO D21, AND D29 TO D49, ONGOING
     Route: 048
     Dates: start: 20210107
  5. TN UNSPECIFIED [Concomitant]
     Indication: Acute lymphocytic leukaemia
     Dosage: 30 MG ON D8, D15, D2, AND D62, ONGOING
     Route: 048
     Dates: start: 20210114
  6. TN UNSPECIFIED [Concomitant]
     Dosage: 12 MG ON D2 AND D30, ONGOING
     Route: 037
     Dates: start: 20210108

REACTIONS (1)
  - Atrial thrombosis [Recovering/Resolving]

NARRATIVE: CASE EVENT DATE: 20210204
